FAERS Safety Report 23866448 (Version 1)
Quarter: 2024Q2

REPORT INFORMATION
  Report Type: Spontaneous
  Country: VN (occurrence: None)
  Receive Date: 20240517
  Receipt Date: 20240517
  Transmission Date: 20240715
  Serious: Yes (Death)
  Sender: FDA-Public Use
  Company Number: VN-ROCHE-3560315

PATIENT
  Sex: Female

DRUGS (1)
  1. TECENTRIQ [Suspect]
     Active Substance: ATEZOLIZUMAB
     Indication: Product used for unknown indication
     Dosage: STRENGTH (1200 MG/20 ML)
     Route: 065

REACTIONS (4)
  - Dyspnoea [Fatal]
  - Electrolyte imbalance [Fatal]
  - Pneumonia [Fatal]
  - Decreased appetite [Fatal]
